FAERS Safety Report 18464252 (Version 1)
Quarter: 2020Q4

REPORT INFORMATION
  Report Type: Report from Study
  Country: KR (occurrence: KR)
  Receive Date: 20201104
  Receipt Date: 20201104
  Transmission Date: 20210114
  Serious: Yes (Hospitalization, Other)
  Sender: FDA-Public Use
  Company Number: KR-JAZZ-2020-KR-008384

PATIENT
  Age: 9 Year
  Sex: Male
  Weight: 38.6 kg

DRUGS (7)
  1. DEFITELIO [Suspect]
     Active Substance: DEFIBROTIDE SODIUM
     Indication: VENOOCCLUSIVE LIVER DISEASE
     Dosage: 235 MILLIGRAM, QID
     Route: 042
     Dates: start: 20200401, end: 20200416
  2. AMBROXOL [Concomitant]
     Active Substance: AMBROXOL
     Indication: PRODUCTIVE COUGH
     Dosage: 15 MILLIGRAM, BID
     Route: 042
     Dates: start: 20200403, end: 20200428
  3. ESOMEPRAZOLE. [Concomitant]
     Active Substance: ESOMEPRAZOLE MAGNESIUM
     Indication: GASTROOESOPHAGEAL REFLUX DISEASE
     Dosage: 20 MILLIGRAM, QD
     Route: 042
     Dates: start: 20200316, end: 20200429
  4. ALPROSTADIL. [Suspect]
     Active Substance: ALPROSTADIL
     Indication: PROPHYLAXIS
     Dosage: 35 MICROGRAM, QD
     Route: 042
     Dates: start: 20200414, end: 20200415
  5. CYCLOSPORINE. [Concomitant]
     Active Substance: CYCLOSPORINE
     Indication: PROPHYLAXIS AGAINST GRAFT VERSUS HOST DISEASE
     Dosage: 45 MICROGRAM, QD
     Route: 042
     Dates: start: 20200317, end: 20200427
  6. GANCICLOVIR. [Concomitant]
     Active Substance: GANCICLOVIR
     Indication: PROPHYLAXIS
     Dosage: 190 MILLIGRAM, BID
     Route: 042
     Dates: start: 20200410, end: 20200501
  7. METHYLPREDNISOLON [METHYLPREDNISOLONE] [Concomitant]
     Active Substance: METHYLPREDNISOLONE
     Indication: PROPHYLAXIS
     Dosage: 35 MILLIGRAM, BID
     Route: 042
     Dates: start: 20200312, end: 20200501

REACTIONS (1)
  - Intestinal haematoma [Recovering/Resolving]

NARRATIVE: CASE EVENT DATE: 20200416
